FAERS Safety Report 22519115 (Version 5)
Quarter: 2024Q4

REPORT INFORMATION
  Report Type: Other
  Country: PL (occurrence: PL)
  Receive Date: 20230605
  Receipt Date: 20241227
  Transmission Date: 20250115
  Serious: Yes (Death, Other)
  Sender: TOLMAR
  Company Number: PL-TEVA-2020-PL-1205443

PATIENT
  Age: 61 Year
  Sex: Male

DRUGS (61)
  1. ELIGARD [Suspect]
     Active Substance: LEUPROLIDE ACETATE
     Indication: Hormone therapy
     Dosage: UNK, Q 6 MONTH
  2. ELIGARD [Suspect]
     Active Substance: LEUPROLIDE ACETATE
     Indication: Prostate cancer
  3. ELIGARD [Suspect]
     Active Substance: LEUPROLIDE ACETATE
     Indication: Hormone therapy
     Dosage: UNK, Q 3 MONTH
  4. ELIGARD [Suspect]
     Active Substance: LEUPROLIDE ACETATE
     Indication: Hormone therapy
     Dosage: UNK
     Dates: start: 2016
  5. ELIGARD [Suspect]
     Active Substance: LEUPROLIDE ACETATE
     Indication: Prostate cancer
  6. ELIGARD [Suspect]
     Active Substance: LEUPROLIDE ACETATE
     Indication: Hormone therapy
     Dosage: UNK
  7. ELIGARD [Suspect]
     Active Substance: LEUPROLIDE ACETATE
     Indication: Prostate cancer
  8. DENOSUMAB [Suspect]
     Active Substance: DENOSUMAB
     Indication: Prostate cancer
     Dosage: 120 MILLIGRAM, Q 1 MONTH
     Route: 058
     Dates: start: 201603
  9. DENOSUMAB [Suspect]
     Active Substance: DENOSUMAB
     Dosage: 120 MILLIGRAM
     Dates: start: 201603
  10. BICALUTAMIDE [Suspect]
     Active Substance: BICALUTAMIDE
     Indication: Prostate cancer
     Dosage: 50 MILLIGRAM, QD
     Dates: start: 201603
  11. DOCETAXEL [Suspect]
     Active Substance: DOCETAXEL
     Indication: Chemotherapy
     Dosage: 50 MILLIGRAM/SQ. METER
  12. DOCETAXEL [Suspect]
     Active Substance: DOCETAXEL
     Dosage: 50 MILLIGRAM/SQ. METER
  13. DOCETAXEL [Suspect]
     Active Substance: DOCETAXEL
     Dosage: 50 MILLIGRAM PER SQUARE METRE
  14. TRAMADOL [Suspect]
     Active Substance: TRAMADOL
     Indication: Pain
     Dosage: 37.5 MILLIGRAM, ADHOC UPTO 4 TIMES DAILY
  15. GABAPENTIN [Suspect]
     Active Substance: GABAPENTIN
     Indication: Pain
     Dosage: 150 MILLIGRAM, QD
  16. GABAPENTIN [Suspect]
     Active Substance: GABAPENTIN
     Dosage: 900 MILLIGRAM
  17. GABAPENTIN [Suspect]
     Active Substance: GABAPENTIN
     Dosage: UNK
  18. GABAPENTIN [Suspect]
     Active Substance: GABAPENTIN
     Dosage: 0.3 GRAM, TID
     Dates: start: 201603, end: 2016
  19. GABAPENTIN [Suspect]
     Active Substance: GABAPENTIN
     Dosage: 300 MILLIGRAM
     Dates: start: 2014
  20. GABAPENTIN [Suspect]
     Active Substance: GABAPENTIN
     Dosage: UNK
     Dates: start: 201401
  21. GABAPENTIN [Suspect]
     Active Substance: GABAPENTIN
     Dosage: 900 MILLIGRAM
  22. GABAPENTIN [Suspect]
     Active Substance: GABAPENTIN
     Dosage: 150 MILLIGRAM, QD
  23. ACETAMINOPHEN\TRAMADOL [Suspect]
     Active Substance: ACETAMINOPHEN\TRAMADOL
     Indication: Analgesic therapy
     Dosage: 1 DOSAGE FORM TRAMADOL HYDROCHLORIDE/ PARACETAMOL 75/650 MG/MG, QID, AS NEEDED
     Dates: start: 201401
  24. ACETAMINOPHEN\TRAMADOL [Suspect]
     Active Substance: ACETAMINOPHEN\TRAMADOL
     Dosage: UNK (AS NEEDED (75/650 MG/MG), UP TO 4 TIMES A DAY)
  25. KETOPROFEN [Suspect]
     Active Substance: KETOPROFEN
     Indication: Pain
     Dosage: 100 MILLIGRAM, BID -MAR-2016
     Dates: start: 201605
  26. KETOPROFEN [Suspect]
     Active Substance: KETOPROFEN
     Dosage: 200 MILLIGRAM, QD
  27. KETOPROFEN [Suspect]
     Active Substance: KETOPROFEN
     Dosage: 100 MILLIGRAM, BID
     Dates: start: 201603
  28. FENTANYL [Suspect]
     Active Substance: FENTANYL
     Indication: Pain
     Dosage: 400 UG, 3 TO 4 TIMES A DAY
     Route: 002
  29. FENTANYL [Suspect]
     Active Substance: FENTANYL
     Indication: Cancer pain
     Dosage: 50 MICROGRAM
     Route: 062
     Dates: start: 201603, end: 2016
  30. FENTANYL [Suspect]
     Active Substance: FENTANYL
     Dosage: 200 MICROGRAM, Q1HR
     Route: 062
  31. FENTANYL [Suspect]
     Active Substance: FENTANYL
     Dosage: 50 MICROGRAM, Q1HR
     Route: 062
  32. FENTANYL [Suspect]
     Active Substance: FENTANYL
     Dosage: 200 UG, 3-4 TIMES A DAY
     Route: 002
  33. FENTANYL [Suspect]
     Active Substance: FENTANYL
     Dosage: 50 MICROGRAM, Q72H
     Route: 062
     Dates: start: 2016, end: 2016
  34. FENTANYL [Suspect]
     Active Substance: FENTANYL
     Dosage: 50 MICROGRAM, Q1HR
     Route: 062
  35. FENTANYL [Suspect]
     Active Substance: FENTANYL
     Dosage: 200 UG, 3-4 TIMES A DAY
     Route: 002
  36. DICLOFENAC [Suspect]
     Active Substance: DICLOFENAC
     Indication: Pain
     Dosage: 100 MILLIGRAM, BID
  37. FENTANYL [Suspect]
     Active Substance: FENTANYL
     Indication: Cancer pain
     Dosage: 400 MICROGRAM
     Route: 002
  38. FENTANYL [Suspect]
     Active Substance: FENTANYL
     Dosage: 200 MICROGRAM
     Route: 048
  39. FENTANYL [Suspect]
     Active Substance: FENTANYL
     Dosage: 200 MICROGRAM
     Route: 048
  40. FENTANYL [Suspect]
     Active Substance: FENTANYL
     Dosage: 400 MICROGRAM
     Route: 002
  41. MORPHINE SULFATE [Suspect]
     Active Substance: MORPHINE SULFATE
     Indication: Pain
     Dosage: 0.02 GRAM
     Route: 048
     Dates: start: 201603
  42. MORPHINE SULFATE [Suspect]
     Active Substance: MORPHINE SULFATE
     Indication: Cancer pain
  43. ACETAMINOPHEN [Suspect]
     Active Substance: ACETAMINOPHEN
     Indication: Pain
     Dosage: 375 MILLIGRAM, QID
  44. METAMIZOLE [Concomitant]
     Active Substance: METAMIZOLE
     Indication: Product used for unknown indication
     Dosage: UNK, 2 DF, UP TO 4 TIMES PER DAY.
  45. DEXKETOPROFEN [Concomitant]
     Active Substance: DEXKETOPROFEN
     Indication: Product used for unknown indication
     Dosage: 1 DOSAGE FORM, TID
  46. TAPENTADOL [Concomitant]
     Active Substance: TAPENTADOL
     Indication: Product used for unknown indication
     Dosage: 75 MILLIGRAM
  47. TAPENTADOL [Concomitant]
     Active Substance: TAPENTADOL
     Dosage: 150 MILLIGRAM, QD
  48. TAPENTADOL [Concomitant]
     Active Substance: TAPENTADOL
     Dosage: 100 MILLIGRAM, QD
  49. TAPENTADOL [Concomitant]
     Active Substance: TAPENTADOL
     Dosage: 0.1 MILLIGRAM, QD
  50. MORPHINE [Concomitant]
     Active Substance: MORPHINE
     Indication: Cancer pain
     Dosage: 20 MILLIGRAM
  51. MORPHINE [Concomitant]
     Active Substance: MORPHINE
     Indication: Pain
     Dosage: 0.02 GRAM, QID
     Route: 048
     Dates: start: 201603
  52. MORPHINE [Concomitant]
     Active Substance: MORPHINE
     Dosage: 0.02 GRAM, QID
     Route: 048
     Dates: start: 201603
  53. VITAMIN D3 [Concomitant]
     Active Substance: CHOLECALCIFEROL
     Indication: Product used for unknown indication
     Dosage: 4000 INTERNATIONAL UNIT, QD
     Dates: start: 201603
  54. VITAMIN D3 [Concomitant]
     Active Substance: CHOLECALCIFEROL
     Dosage: UNK
  55. VITAMIN D3 [Concomitant]
     Active Substance: CHOLECALCIFEROL
     Dosage: UNK
  56. NIMESULIDE [Concomitant]
     Active Substance: NIMESULIDE
     Indication: Product used for unknown indication
     Dosage: UNK
  57. ABIRATERONE [Concomitant]
     Active Substance: ABIRATERONE\ABIRATERONE ACETATE
     Indication: Prostate cancer
     Dosage: UNK
     Dates: start: 201403, end: 201603
  58. PREGABALIN [Concomitant]
     Active Substance: PREGABALIN
     Indication: Product used for unknown indication
     Dosage: 0.15 GRAM, QD
  59. PREGABALIN [Concomitant]
     Active Substance: PREGABALIN
     Dosage: 0.15 GRAM, BID
  60. CHOLECALCIFEROL [Concomitant]
     Active Substance: CHOLECALCIFEROL
     Indication: Product used for unknown indication
     Dosage: 4000 INTERNATIONAL UNIT, QD
     Dates: start: 201603
  61. IRON [Concomitant]
     Active Substance: IRON
     Indication: Product used for unknown indication
     Dosage: UNK

REACTIONS (18)
  - Confusional state [Fatal]
  - Dermatitis allergic [Fatal]
  - Pulmonary embolism [Fatal]
  - Allodynia [Fatal]
  - Polyneuropathy [Fatal]
  - Decreased appetite [Fatal]
  - Quality of life decreased [Fatal]
  - Chronic kidney disease [Fatal]
  - Hyperaesthesia [Recovered/Resolved]
  - Drug dependence [Recovered/Resolved]
  - Metastases to lung [Unknown]
  - Polyneuropathy in malignant disease [Fatal]
  - Toxicity to various agents [Recovered/Resolved]
  - Anaemia [Unknown]
  - Drug ineffective [Fatal]
  - Constipation [Fatal]
  - Metastases to bone [Unknown]
  - Malignant neoplasm progression [Unknown]

NARRATIVE: CASE EVENT DATE: 20160101
